FAERS Safety Report 7664163-7 (Version None)
Quarter: 2011Q3

REPORT INFORMATION
  Report Type: 
  Country: None (occurrence: None)
  Receive Date: 20110806
  Receipt Date: 20110112
  Transmission Date: 20111222
  Serious: No
  Sender: FDA-Public Use
  Company Number: US-ABBOTT-11P-163-0696665-00

PATIENT
  Sex: Male

DRUGS (3)
  1. CRESTOR [Concomitant]
     Indication: PRODUCT USED FOR UNKNOWN INDICATION
  2. NIASPAN [Suspect]
     Indication: PRODUCT USED FOR UNKNOWN INDICATION
  3. ASPIRIN [Concomitant]
     Indication: PRODUCT USED FOR UNKNOWN INDICATION

REACTIONS (7)
  - FEELING HOT [None]
  - HEADACHE [None]
  - PARAESTHESIA [None]
  - BURNING SENSATION [None]
  - HYPERHIDROSIS [None]
  - FLUSHING [None]
  - ABDOMINAL DISCOMFORT [None]
